FAERS Safety Report 7341542-9 (Version None)
Quarter: 2011Q1

REPORT INFORMATION
  Report Type: 
  Country: None (occurrence: None)
  Receive Date: 20110301
  Receipt Date: 20110214
  Transmission Date: 20110831
  Serious: Yes (Other)
  Sender: FDA-Public Use
  Company Number: DSU-2011-01142

PATIENT

DRUGS (1)
  1. BENICAR [Suspect]
     Indication: HYPERTENSION
     Dosage: 20 MG (20 MG,QD),PER ORAL
     Route: 048
     Dates: start: 20100101

REACTIONS (8)
  - SPINAL FRACTURE [None]
  - VISUAL IMPAIRMENT [None]
  - DRUG DOSE OMISSION [None]
  - DIZZINESS [None]
  - BLOOD PRESSURE INCREASED [None]
  - BALANCE DISORDER [None]
  - FALL [None]
  - PAIN [None]
